FAERS Safety Report 4924604-2 (Version None)
Quarter: 2006Q1

REPORT INFORMATION
  Report Type: 
  Country: None (occurrence: None)
  Receive Date: 20060222
  Receipt Date: 20060203
  Transmission Date: 20060701
  Serious: Yes (Other)
  Sender: FDA-Public Use
  Company Number: BR-2006-002188

PATIENT
  Age: 37 Year
  Sex: Female

DRUGS (2)
  1. BETAFERON (INTERFERON BETA - 1B) INJECTION, 250?G [Suspect]
     Indication: MULTIPLE SCLEROSIS
     Dosage: 1 ML, EVERY 2D, SUBCUTANEOUS
     Route: 058
     Dates: start: 20021001, end: 20030301
  2. REFIB () [Suspect]
     Indication: MULTIPLE SCLEROSIS

REACTIONS (1)
  - THROMBOSIS [None]
